FAERS Safety Report 15061140 (Version 1)
Quarter: 2018Q2

REPORT INFORMATION
  Report Type: Spontaneous
  Country: US (occurrence: US)
  Receive Date: 20180625
  Receipt Date: 20180625
  Transmission Date: 20180711
  Serious: No
  Sender: FDA-Public Use
  Company Number: US-ROCHE-2113544

PATIENT
  Age: 59 Year
  Sex: Female
  Weight: 124.85 kg

DRUGS (4)
  1. CELLCEPT [Suspect]
     Active Substance: MYCOPHENOLATE MOFETIL\MYCOPHENOLATE MOFETIL HYDROCHLORIDE
     Route: 048
     Dates: start: 20180418
  2. CELLCEPT [Suspect]
     Active Substance: MYCOPHENOLATE MOFETIL\MYCOPHENOLATE MOFETIL HYDROCHLORIDE
     Indication: SCLERODERMA
     Route: 048
     Dates: start: 20180417
  3. METHOTREXATE. [Concomitant]
     Active Substance: METHOTREXATE
     Indication: SCLERODERMA
     Route: 065
     Dates: end: 201803
  4. CELLCEPT [Suspect]
     Active Substance: MYCOPHENOLATE MOFETIL\MYCOPHENOLATE MOFETIL HYDROCHLORIDE
     Route: 048
     Dates: start: 20180419, end: 20180419

REACTIONS (6)
  - Anal incontinence [Recovered/Resolved]
  - Tremor [Recovered/Resolved]
  - Intentional product use issue [Unknown]
  - Disorientation [Recovered/Resolved]
  - Visual impairment [Unknown]
  - Off label use [Unknown]

NARRATIVE: CASE EVENT DATE: 20180420
